FAERS Safety Report 6786301-0 (Version None)
Quarter: 2010Q2

REPORT INFORMATION
  Report Type: 
  Country: None (occurrence: None)
  Receive Date: 20100621
  Receipt Date: 20100621
  Transmission Date: 20101027
  Serious: Yes (Other)
  Sender: FDA-Public Use
  Company Number: None

PATIENT
  Age: 55 Year
  Sex: Female
  Weight: 72.5755 kg

DRUGS (2)
  1. NUVIGIL [Suspect]
     Indication: FATIGUE
     Dosage: 250 MG, 1 DAILY PO
     Route: 048
     Dates: start: 20100610, end: 20100616
  2. NUVIGIL [Suspect]
     Indication: FIBROMYALGIA
     Dosage: 250 MG, 1 DAILY PO
     Route: 048
     Dates: start: 20100610, end: 20100616

REACTIONS (8)
  - ANXIETY [None]
  - CHEST PAIN [None]
  - DYSPNOEA [None]
  - FEELING OF BODY TEMPERATURE CHANGE [None]
  - PAIN IN EXTREMITY [None]
  - PALPITATIONS [None]
  - PHARYNGEAL OEDEMA [None]
  - RESTLESSNESS [None]
